FAERS Safety Report 5481743-8 (Version None)
Quarter: 2007Q4

REPORT INFORMATION
  Report Type: 
  Country: None (occurrence: None)
  Receive Date: 20071010
  Receipt Date: 20070928
  Transmission Date: 20080405
  Serious: Yes (Other)
  Sender: FDA-Public Use
  Company Number: ES-SHR-ES-2005-023206

PATIENT
  Age: 31 Year
  Sex: Female

DRUGS (5)
  1. BETAFERON [Suspect]
     Indication: RELAPSING-REMITTING MULTIPLE SCLEROSIS
     Dosage: 16 MIU, EVERY 2D
     Route: 058
     Dates: start: 20050302, end: 20050604
  2. OMEPRAZOLE [Concomitant]
     Indication: PROPHYLAXIS
     Dosage: 20 MG, 1X/DAY
     Route: 048
     Dates: start: 20020901
  3. IBUPROFEN [Concomitant]
     Dosage: 600 MG, EVERY 2D
     Route: 048
     Dates: start: 20050316
  4. METHYLPREDNISOLONE [Concomitant]
     Indication: MULTIPLE SCLEROSIS RELAPSE
     Dosage: 1 G, 1X/DAY
     Route: 042
     Dates: start: 20050413, end: 20050415
  5. GABAPENTIN [Concomitant]
     Indication: MULTIPLE SCLEROSIS RELAPSE
     Dosage: 300 MG, 2X/DAY
     Route: 048
     Dates: start: 20050420

REACTIONS (1)
  - INJECTION SITE ULCER [None]
